FAERS Safety Report 10455520 (Version 1)
Quarter: 2014Q3

REPORT INFORMATION
  Report Type: Spontaneous
  Country: US (occurrence: None)
  Receive Date: 20140915
  Receipt Date: 20140915
  Transmission Date: 20150326
  Serious: Yes (Other)
  Sender: FDA-Public Use
  Company Number: None

PATIENT

DRUGS (1)
  1. OPCON-A [Suspect]
     Active Substance: NAPHAZOLINE HYDROCHLORIDE\PHENIRAMINE MALEATE
     Indication: EYE PRURITUS
     Dates: start: 20140507, end: 20140903

REACTIONS (5)
  - Stress [None]
  - Throat tightness [None]
  - Poor quality sleep [None]
  - Palpitations [None]
  - Heart rate irregular [None]

NARRATIVE: CASE EVENT DATE: 20140912
